FAERS Safety Report 10475327 (Version 1)
Quarter: 2014Q3

REPORT INFORMATION
  Report Type: Spontaneous
  Country: US (occurrence: US)
  Receive Date: 20140925
  Receipt Date: 20140925
  Transmission Date: 20150326
  Serious: No
  Sender: FDA-Public Use
  Company Number: US-VIIV HEALTHCARE LIMITED-A1057270A

PATIENT
  Age: 40 Year
  Sex: Male

DRUGS (8)
  1. SELZENTRY [Suspect]
     Active Substance: MARAVIROC
     Indication: HIV INFECTION
     Dosage: 600MG TWICE PER DAY
     Route: 048
     Dates: start: 2007
  2. DIOVAN [Concomitant]
     Active Substance: VALSARTAN
  3. ISENTRESS [Concomitant]
     Active Substance: RALTEGRAVIR POTASSIUM
  4. INTELENCE [Concomitant]
     Active Substance: ETRAVIRINE
  5. VIREAD [Concomitant]
     Active Substance: TENOFOVIR DISOPROXIL FUMARATE
  6. NIASPAN [Concomitant]
     Active Substance: NIACIN
  7. ZIAGEN [Concomitant]
     Active Substance: ABACAVIR SULFATE
  8. TRICOR [Concomitant]
     Active Substance: FENOFIBRATE

REACTIONS (1)
  - Prescribed overdose [Unknown]

NARRATIVE: CASE EVENT DATE: 2007
